FAERS Safety Report 8283688-7 (Version None)
Quarter: 2012Q2

REPORT INFORMATION
  Report Type: 
  Country: None (occurrence: None)
  Receive Date: 20120413
  Receipt Date: 20120409
  Transmission Date: 20120825
  Serious: Yes (Hospitalization)
  Sender: FDA-Public Use
  Company Number: US-PFIZER INC-2012088367

PATIENT
  Sex: Female
  Weight: 95.692 kg

DRUGS (3)
  1. LASIX [Concomitant]
     Indication: DIURETIC THERAPY
     Dosage: 20 MG, 1X/DAY
  2. REVATIO [Suspect]
     Indication: CARDIAC DISORDER
     Dosage: 20 MG, 3X/DAY
     Route: 048
     Dates: start: 20110101
  3. REVATIO [Suspect]
     Indication: LUNG DISORDER

REACTIONS (3)
  - MALAISE [None]
  - PNEUMONIA [None]
  - CARBON DIOXIDE INCREASED [None]
